FAERS Safety Report 5552082-1 (Version None)
Quarter: 2007Q4

REPORT INFORMATION
  Report Type: 
  Country: None (occurrence: None)
  Receive Date: 20071212
  Receipt Date: 20071130
  Transmission Date: 20080405
  Serious: Yes (Other)
  Sender: FDA-Public Use
  Company Number: FR-PFIZER INC-2007103060

PATIENT
  Sex: Male

DRUGS (3)
  1. REVATIO [Suspect]
  2. FLUINDIONE [Concomitant]
  3. HEPARIN [Concomitant]

REACTIONS (1)
  - INTERNATIONAL NORMALISED RATIO FLUCTUATION [None]
